FAERS Safety Report 6938793-1 (Version None)
Quarter: 2010Q3

REPORT INFORMATION
  Report Type: 
  Country: None (occurrence: None)
  Receive Date: 20100824
  Receipt Date: 20100817
  Transmission Date: 20110219
  Serious: Yes (Death, Hospitalization)
  Sender: FDA-Public Use
  Company Number: US-ROCHE-716676

PATIENT
  Sex: Male
  Weight: 82.1 kg

DRUGS (3)
  1. BEVACIZUMAB [Suspect]
     Dosage: FORM: INFUSION. INFUSION DURATION : 90 MINUTES.
     Route: 042
     Dates: start: 20100526, end: 20100712
  2. IPILIMUMAB [Suspect]
     Dosage: EVERY 3 WEEKS X 4-EVERY 3 MONTH
     Route: 065
     Dates: start: 20100526, end: 20100712
  3. OXYCONTIN [Concomitant]
     Dosage: OXYCONTIN AND OXYCODONE.

REACTIONS (3)
  - ABDOMINAL PAIN [None]
  - DISEASE PROGRESSION [None]
  - FATIGUE [None]
